FAERS Safety Report 26133416 (Version 1)
Quarter: 2025Q4

REPORT INFORMATION
  Report Type: Spontaneous
  Country: US (occurrence: US)
  Receive Date: 20251209
  Receipt Date: 20251209
  Transmission Date: 20260118
  Serious: No
  Sender: UPSHER SMITH LABORATORIES
  Company Number: US-UPSHER-SMITH LABORATORIES, LLC-20241200285

PATIENT
  Age: 46 Year
  Sex: Female
  Weight: 80.726 kg

DRUGS (2)
  1. KLOR-CON M [Suspect]
     Active Substance: POTASSIUM CHLORIDE
     Indication: Blood potassium decreased
     Dosage: 500 MG (1-2 PILLS)
     Route: 065
     Dates: start: 20241113
  2. KLOR-CON M [Suspect]
     Active Substance: POTASSIUM CHLORIDE
     Dosage: 3000 MG
     Route: 065
     Dates: start: 20241114

REACTIONS (2)
  - Dizziness [Unknown]
  - Vertigo [Recovered/Resolved]
